FAERS Safety Report 5263111-7 (Version None)
Quarter: 2007Q1

REPORT INFORMATION
  Report Type: 
  Country: None (occurrence: None)
  Receive Date: 20070312
  Receipt Date: 20070227
  Transmission Date: 20070707
  Serious: Yes (Disabling, Other)
  Sender: FDA-Public Use
  Company Number: GB-MERCK-0703GBR00004

PATIENT
  Age: 72 Year
  Sex: Male
  Weight: 95 kg

DRUGS (6)
  1. ZOCOR [Suspect]
     Route: 048
     Dates: start: 20061102, end: 20061105
  2. ZOCOR [Suspect]
     Route: 048
     Dates: start: 20061101, end: 20061101
  3. DICLOFENAC SODIUM AND MISOPROSTOL [Concomitant]
     Route: 048
     Dates: start: 20050221
  4. BENDROFLUMETHIAZIDE [Concomitant]
     Route: 048
     Dates: start: 20021028
  5. BISOPROLOL [Concomitant]
     Route: 048
     Dates: start: 20041223
  6. ACETAMINOPHEN AND CODEINE PHOSPHATE [Concomitant]
     Route: 048
     Dates: start: 20061127

REACTIONS (4)
  - ARTHRALGIA [None]
  - DYSPNOEA EXERTIONAL [None]
  - HYPOAESTHESIA [None]
  - PAIN IN EXTREMITY [None]
